FAERS Safety Report 10813304 (Version 1)
Quarter: 2015Q1

REPORT INFORMATION
  Report Type: Spontaneous
  Country: US (occurrence: US)
  Receive Date: 20150218
  Receipt Date: 20150218
  Transmission Date: 20150721
  Serious: No
  Sender: FDA-Public Use
  Company Number: US-ABBVIE-14K-163-1273144-00

PATIENT
  Age: 48 Year
  Sex: Male
  Weight: 120.31 kg

DRUGS (3)
  1. UNKNOWN ANXIETY MEDICATION [Concomitant]
     Indication: ANXIETY
  2. HUMIRA [Suspect]
     Active Substance: ADALIMUMAB
     Indication: COLITIS ULCERATIVE
     Route: 058
     Dates: start: 201405
  3. ITRACONAZOLE. [Concomitant]
     Active Substance: ITRACONAZOLE
     Indication: HISTOPLASMOSIS

REACTIONS (3)
  - Poor quality drug administered [Recovered/Resolved]
  - Colitis ulcerative [Recovering/Resolving]
  - Incorrect product storage [Unknown]

NARRATIVE: CASE EVENT DATE: 201408
